FAERS Safety Report 6908194-0 (Version None)
Quarter: 2010Q3

REPORT INFORMATION
  Report Type: 
  Country: None (occurrence: None)
  Receive Date: 20100708
  Receipt Date: 20090714
  Transmission Date: 20110219
  Serious: Yes (Other)
  Sender: FDA-Public Use
  Company Number: 2007108947

PATIENT
  Age: 22 Year
  Sex: Female
  Weight: 56.7 kg

DRUGS (1)
  1. CHANTIX [Suspect]
     Indication: SMOKING CESSATION THERAPY
     Dosage: 0.5 MG, 1X/DAY, ORAL
     Route: 048
     Dates: start: 20071217

REACTIONS (7)
  - ABNORMAL DREAMS [None]
  - CONSTIPATION [None]
  - DEPRESSION [None]
  - HALLUCINATION [None]
  - INSOMNIA [None]
  - NAUSEA [None]
  - NIGHTMARE [None]
